FAERS Safety Report 7471831-9 (Version None)
Quarter: 2011Q2

REPORT INFORMATION
  Report Type: 
  Country: None (occurrence: None)
  Receive Date: 20110511
  Receipt Date: 20100514
  Transmission Date: 20111010
  Serious: No
  Sender: FDA-Public Use
  Company Number: A0862051A

PATIENT
  Age: 60 Year
  Sex: Female

DRUGS (2)
  1. XELODA [Suspect]
  2. TYKERB [Suspect]
     Dosage: 1250MG PER DAY
     Route: 048
     Dates: start: 20100310

REACTIONS (3)
  - DRY SKIN [None]
  - SKIN CHAPPED [None]
  - RASH [None]
